FAERS Safety Report 4854916-2 (Version None)
Quarter: 2005Q4

REPORT INFORMATION
  Report Type: 
  Country: None (occurrence: None)
  Receive Date: 20051208
  Receipt Date: 20051109
  Transmission Date: 20060501
  Serious: Yes (Other)
  Sender: FDA-Public Use
  Company Number: 200510006BCA

PATIENT
  Age: 35 Year
  Sex: Male
  Weight: 70 kg

DRUGS (18)
  1. GAMUNEX [Suspect]
     Indication: HYPOGAMMAGLOBULINAEMIA
     Dosage: 35 G Q2MON INTRAVENOUS; Q2WK INTRAVENOUS
     Route: 042
     Dates: start: 20040801, end: 20041101
  2. GAMUNEX [Suspect]
     Indication: IDIOPATHIC THROMBOCYTOPENIC PURPURA
     Dosage: 35 G Q2MON INTRAVENOUS; Q2WK INTRAVENOUS
     Route: 042
     Dates: start: 20040801, end: 20041101
  3. GAMUNEX [Suspect]
     Indication: HYPOGAMMAGLOBULINAEMIA
     Dosage: 35 G Q2MON INTRAVENOUS; Q2WK INTRAVENOUS
     Route: 042
     Dates: start: 19970101
  4. GAMUNEX [Suspect]
     Indication: IDIOPATHIC THROMBOCYTOPENIC PURPURA
     Dosage: 35 G Q2MON INTRAVENOUS; Q2WK INTRAVENOUS
     Route: 042
     Dates: start: 19970101
  5. ZINC [Concomitant]
  6. PREDNISONE 50MG TAB [Concomitant]
  7. BIAXIN [Concomitant]
  8. LASIX [Concomitant]
  9. SPIROLACTONE [Concomitant]
  10. IRON [Concomitant]
  11. GAMUNEX [Suspect]
  12. GAMUNEX [Suspect]
  13. GAMUNEX [Suspect]
  14. GAMUNEX [Suspect]
  15. GAMUNEX [Suspect]
  16. GAMUNEX [Suspect]
  17. GAMUNEX [Suspect]
  18. GAMUNEX [Suspect]

REACTIONS (3)
  - COOMBS DIRECT TEST POSITIVE [None]
  - HAEMOLYTIC ANAEMIA [None]
  - RHESUS ANTIBODIES POSITIVE [None]
